FAERS Safety Report 16298204 (Version 2)
Quarter: 2019Q3

REPORT INFORMATION
  Report Type: Report from Study
  Country: None (occurrence: US)
  Receive Date: 20190510
  Receipt Date: 20190815
  Transmission Date: 20191004
  Serious: Yes (Other)
  Sender: FDA-Public Use
  Company Number: US-ABBVIE-19K-163-2776514-00

PATIENT
  Sex: Female
  Weight: 66.28 kg

DRUGS (2)
  1. MAGNESIUM [Concomitant]
     Active Substance: MAGNESIUM
     Indication: PRODUCT USED FOR UNKNOWN INDICATION
  2. HUMIRA [Suspect]
     Active Substance: ADALIMUMAB
     Indication: CROHN^S DISEASE
     Dosage: CITRATE FREE
     Route: 058

REACTIONS (6)
  - Allergic cough [Not Recovered/Not Resolved]
  - Blood pressure increased [Unknown]
  - Cardiac fibrillation [Not Recovered/Not Resolved]
  - Cardiac flutter [Unknown]
  - Hypersensitivity [Not Recovered/Not Resolved]
  - Proctitis [Unknown]
